FAERS Safety Report 18549365 (Version 3)
Quarter: 2022Q1

REPORT INFORMATION
  Report Type: Spontaneous
  Country: SA (occurrence: SA)
  Receive Date: 20201126
  Receipt Date: 20220203
  Transmission Date: 20220423
  Serious: Yes (Other)
  Sender: FDA-Public Use
  Company Number: SA-002147023-NVSC2020SA308505

PATIENT
  Age: 2 Week

DRUGS (1)
  1. XOLAIR [Suspect]
     Active Substance: OMALIZUMAB
     Indication: Asthma
     Dosage: MATERNAL DOSE 450 MG, ONCE PER MONTH
     Route: 064

REACTIONS (2)
  - Ill-defined disorder [Unknown]
  - Foetal exposure during pregnancy [Unknown]
